FAERS Safety Report 11092975 (Version 1)
Quarter: 2015Q2

REPORT INFORMATION
  Report Type: Spontaneous
  Country: TR (occurrence: TR)
  Receive Date: 20150506
  Receipt Date: 20150506
  Transmission Date: 20150821
  Serious: Yes (Hospitalization, Other)
  Sender: FDA-Public Use
  Company Number: TR-SUN PHARMACEUTICAL INDUSTRIES LTD-2015RR-96830

PATIENT
  Age: 17 Year
  Sex: Male

DRUGS (3)
  1. INTERFERON-ALPHA-2B [Suspect]
     Active Substance: INTERFERON ALFA-2B
     Indication: CHRONIC HEPATITIS B
     Dosage: 30 MIU 3 TIMES A WEEK
     Route: 065
  2. RISPERIDONE. [Suspect]
     Active Substance: RISPERIDONE
     Indication: MAJOR DEPRESSION
     Dosage: 3 MG
     Route: 048
  3. OLANZAPINE. [Suspect]
     Active Substance: OLANZAPINE
     Indication: PSYCHOTIC DISORDER
     Dosage: 5 MG
     Route: 065

REACTIONS (4)
  - Extrapyramidal disorder [Unknown]
  - Incontinence [Recovered/Resolved]
  - Muscle rigidity [Recovered/Resolved]
  - Major depression [Recovering/Resolving]
